FAERS Safety Report 7702723-5 (Version None)
Quarter: 2011Q3

REPORT INFORMATION
  Report Type: 
  Country: None (occurrence: None)
  Receive Date: 20110823
  Receipt Date: 20100623
  Transmission Date: 20111222
  Serious: No
  Sender: FDA-Public Use
  Company Number: US-BAYER-201027642NA

PATIENT
  Age: 52 Year
  Sex: Female

DRUGS (1)
  1. ANGELIQ [Suspect]
     Indication: MENOPAUSE
     Dosage: 0.5MG/1.0MG
     Route: 048
     Dates: start: 20100601, end: 20100601

REACTIONS (2)
  - ABDOMINAL PAIN [None]
  - MUSCLE SPASMS [None]
